FAERS Safety Report 9215212 (Version 1)
Quarter: 2013Q2

REPORT INFORMATION
  Report Type: Spontaneous
  Country: IT (occurrence: IT)
  Receive Date: 20130405
  Receipt Date: 20130405
  Transmission Date: 20140414
  Serious: Yes (Other)
  Sender: FDA-Public Use
  Company Number: IT-ELI_LILLY_AND_COMPANY-IT201303009768

PATIENT
  Sex: 0

DRUGS (9)
  1. GEMCITABINE HYDROCHLORIDE [Suspect]
     Indication: NON-SMALL CELL LUNG CANCER STAGE IIIA
     Dosage: 800 MG/M2, OTHER
     Route: 042
  2. PACLITAXEL [Concomitant]
     Indication: NON-SMALL CELL LUNG CANCER STAGE IIIA
     Dosage: 175 MG/M2, OTHER
     Route: 042
  3. CARBOPLATIN [Concomitant]
     Indication: NON-SMALL CELL LUNG CANCER STAGE IIIA
     Route: 042
  4. RANITIDINE [Concomitant]
     Indication: PREMEDICATION
     Dosage: 100 MG, OTHER
     Route: 042
  5. METHYLPREDNISOLONE [Concomitant]
     Indication: PREMEDICATION
     Dosage: 250 MG, OTHER
     Route: 042
  6. CHLORPHENAMINE [Concomitant]
     Indication: PREMEDICATION
     Dosage: 10 MG, OTHER
     Route: 042
  7. ONDANSETRON [Concomitant]
     Indication: PREMEDICATION
     Dosage: 8 MG, OTHER
     Route: 042
  8. PREDNISOLONE [Concomitant]
     Indication: PREMEDICATION
     Dosage: 25 MG, OTHER
     Route: 048
  9. DEXAMETHASONE [Concomitant]
     Indication: PREMEDICATION
     Dosage: 8 MG, OTHER
     Route: 042

REACTIONS (1)
  - Cardiotoxicity [Unknown]
